FAERS Safety Report 25789210 (Version 1)
Quarter: 2025Q3

REPORT INFORMATION
  Report Type: Spontaneous
  Country: US (occurrence: US)
  Receive Date: 20250911
  Receipt Date: 20250911
  Transmission Date: 20251020
  Serious: Yes (Death, Other)
  Sender: AMGEN
  Company Number: US-AMGEN-USASP2025175581

PATIENT

DRUGS (2)
  1. RITUXIMAB [Suspect]
     Active Substance: RITUXIMAB
     Indication: B-cell lymphoma
     Dosage: 375 MILLIGRAM/SQ. METER, Q4WK (FOUR WEEKLY INFUSIONS)
     Route: 065
  2. PREDNISONE [Suspect]
     Active Substance: PREDNISONE
     Indication: B-cell lymphoma
     Route: 065

REACTIONS (9)
  - Myelodysplastic syndrome [Fatal]
  - Neuroendocrine carcinoma of the skin [Fatal]
  - B-cell lymphoma recurrent [Unknown]
  - Diarrhoea [Recovered/Resolved]
  - Dysgeusia [Recovered/Resolved]
  - Dry mouth [Unknown]
  - Therapy partial responder [Unknown]
  - Therapy non-responder [Unknown]
  - Nervous system disorder [Unknown]
